FAERS Safety Report 7119287-X (Version None)
Quarter: 2010Q4

REPORT INFORMATION
  Report Type: 
  Country: None (occurrence: None)
  Receive Date: 20101123
  Receipt Date: 20101116
  Transmission Date: 20110411
  Serious: Yes (Hospitalization)
  Sender: FDA-Public Use
  Company Number: CA-ABBOTT-10P-028-0680075-00

PATIENT
  Sex: Male
  Weight: 101 kg

DRUGS (12)
  1. HUMIRA [Suspect]
     Indication: PSORIASIS
     Route: 058
     Dates: start: 20100424
  2. HUMIRA [Suspect]
     Dosage: FIRST REGISTRY DOSE
     Route: 058
     Dates: start: 20100515, end: 20101021
  3. HUMIRA [Suspect]
     Route: 058
  4. COVERSYL [Concomitant]
     Indication: HYPERTENSION
     Dates: start: 19950101, end: 20101001
  5. EZETROL [Concomitant]
     Indication: HYPERLIPIDAEMIA
     Dates: start: 19950101
  6. METHYLPREDNISOLONE [Concomitant]
     Indication: ARTHRITIS
     Dosage: 80 MG/ML
     Dates: start: 20050101
  7. METOPROLOL [Concomitant]
     Indication: HYPERTENSION
     Dates: start: 19950101
  8. PLAVIX [Concomitant]
     Indication: ANTICOAGULANT THERAPY
     Dates: start: 19950101
  9. CRESTOR [Concomitant]
     Indication: HYPERLIPIDAEMIA
     Dates: start: 19950101
  10. NITRO-DUR [Concomitant]
     Indication: ANGINA PECTORIS
     Dates: start: 19860101
  11. RHO-NITRO PUMPSPRAY [Concomitant]
     Indication: ANGINA PECTORIS
     Dosage: 1 SPRAY
     Dates: start: 19860101
  12. FOLIC ACID [Concomitant]
     Indication: ROUTINE HEALTH MAINTENANCE
     Dates: start: 20090101

REACTIONS (1)
  - PNEUMOTHORAX [None]
